FAERS Safety Report 6373250-5 (Version None)
Quarter: 2009Q3

REPORT INFORMATION
  Report Type: 
  Country: None (occurrence: None)
  Receive Date: 20090924
  Receipt Date: 20090914
  Transmission Date: 20100115
  Serious: No
  Sender: FDA-Public Use
  Company Number: US-B.I. PHARMACEUTICALS,INC./RIDGEFIELD-2007-BP-19918BP

PATIENT
  Sex: Female

DRUGS (2)
  1. SPIRIVA [Suspect]
     Indication: CHRONIC OBSTRUCTIVE PULMONARY DISEASE
     Dosage: 18 MCG
     Route: 055
     Dates: start: 20060801
  2. ADVAIR HFA [Concomitant]
     Indication: ASTHMA
     Route: 055

REACTIONS (3)
  - CROUP INFECTIOUS [None]
  - FEELING ABNORMAL [None]
  - THROAT IRRITATION [None]
